FAERS Safety Report 9809138 (Version 2)
Quarter: 2014Q1

REPORT INFORMATION
  Report Type: Spontaneous
  Country: US (occurrence: US)
  Receive Date: 20140110
  Receipt Date: 20140210
  Transmission Date: 20141002
  Serious: No
  Sender: FDA-Public Use
  Company Number: US-009507513-1401USA004053

PATIENT
  Sex: Male
  Weight: 92.97 kg

DRUGS (10)
  1. MIRALAX [Suspect]
     Indication: DIVERTICULUM
     Dosage: 17 G, QD
     Route: 048
     Dates: start: 201306
  2. MIRALAX [Suspect]
     Indication: IRRITABLE BOWEL SYNDROME
  3. MIRALAX [Suspect]
     Indication: CONSTIPATION
  4. LIVALO [Concomitant]
     Indication: DIVERTICULUM
     Dosage: UNK, UNKNOWN
  5. LIVALO [Concomitant]
     Indication: DIVERTICULITIS
  6. FAMOTIDINE [Concomitant]
     Indication: IRRITABLE BOWEL SYNDROME
     Dosage: UNK, UNKNOWN
  7. PROCHLORPERAZINE [Concomitant]
     Indication: NEPHROLITHIASIS
     Dosage: UNK, UNKNOWN
  8. PROCHLORPERAZINE [Concomitant]
     Indication: URINARY TRACT INFECTION
  9. MECLIZINE [Concomitant]
     Indication: INTERVERTEBRAL DISC PROTRUSION
     Dosage: UNK, UNKNOWN
  10. OMEGA-3 MARINE TRIGLYCERIDES [Concomitant]
     Indication: EPIPLOIC APPENDAGITIS
     Dosage: UNK, UNKNOWN

REACTIONS (3)
  - Incorrect drug administration duration [Unknown]
  - Product physical consistency issue [Unknown]
  - Off label use [Unknown]
